FAERS Safety Report 8132788 (Version 4)
Quarter: 2013Q1

REPORT INFORMATION
  Report Type: Spontaneous
  Country: US (occurrence: US)
  Receive Date: 20110913
  Receipt Date: 20130314
  Transmission Date: 20140127
  Serious: Yes (Other)
  Sender: FDA-Public Use
  Company Number: US-US-EMD SERONO, INC.-7081058

PATIENT
  Sex: Female

DRUGS (2)
  1. REBIF [Suspect]
     Indication: MULTIPLE SCLEROSIS
     Route: 058
     Dates: start: 20100611, end: 20121114
  2. REBIF [Suspect]
     Route: 058
     Dates: start: 20130215

REACTIONS (5)
  - Invasive ductal breast carcinoma [Not Recovered/Not Resolved]
  - Intraductal proliferative breast lesion [Not Recovered/Not Resolved]
  - Benign salivary gland neoplasm [Recovered/Resolved]
  - Influenza like illness [Unknown]
  - Fatigue [Unknown]
